FAERS Safety Report 8575936-0 (Version None)
Quarter: 2012Q3

REPORT INFORMATION
  Report Type: 
  Country: None (occurrence: None)
  Receive Date: 20120807
  Receipt Date: 20120801
  Transmission Date: 20120928
  Serious: No
  Sender: FDA-Public Use
  Company Number: US-PFIZER INC-2012187877

PATIENT
  Age: 47 Year
  Sex: Female
  Weight: 105 kg

DRUGS (8)
  1. OXYCODONE [Concomitant]
     Dosage: UNK
  2. PROVENTIL-HFA [Concomitant]
     Dosage: UNK
  3. GABAPENTIN [Suspect]
     Indication: NEURALGIA
     Dosage: UNK, 3X/DAY
     Route: 048
     Dates: end: 20080101
  4. NEURONTIN [Suspect]
     Indication: NEURALGIA
     Dosage: 600 MG, 3X/DAY
     Route: 048
  5. NEURONTIN [Suspect]
     Dosage: 3000 MG (FIVE TABLETS OF 600MG), 2X/DAY
     Route: 048
     Dates: start: 20080101, end: 20080101
  6. NEURONTIN [Suspect]
     Dosage: 3600 MG (SIX TABLETS OF 600MG), 2X/DAY
     Route: 048
     Dates: start: 20080101
  7. CELEBREX [Concomitant]
     Dosage: 200 MG, 2X/DAY
  8. DIAZEPAM [Concomitant]
     Dosage: UNK

REACTIONS (2)
  - NEURALGIA [None]
  - INCORRECT DOSE ADMINISTERED [None]
